FAERS Safety Report 8217418-1 (Version None)
Quarter: 2012Q1

REPORT INFORMATION
  Report Type: 
  Country: None (occurrence: None)
  Receive Date: 20120313
  Receipt Date: 20120306
  Transmission Date: 20120608
  Serious: Yes (Hospitalization)
  Sender: FDA-Public Use
  Company Number: 2012-0125

PATIENT
  Age: 55 Year
  Sex: Male

DRUGS (2)
  1. SOMATULINE AUTOSOLUTION 12MG (LANREOTIDE AUTOGEL) (LANREOTIDE)) [Suspect]
  2. SOMATULINE AUTOSOLUTION 12MG (LANREOTIDE AUTOGEL) (LANREOTIDE) [Suspect]
     Indication: PRODUCT USED FOR UNKNOWN INDICATION
     Dosage: 120 MG (120 MG, 1 IN 28 D, INTRAMUSCULAR

REACTIONS (3)
  - ARTERIOSPASM CORONARY [None]
  - CHEST PAIN [None]
  - EMOTIONAL DISORDER [None]
